FAERS Safety Report 15604398 (Version 1)
Quarter: 2018Q4

REPORT INFORMATION
  Report Type: Other
  Country: JP (occurrence: JP)
  Receive Date: 20181110
  Receipt Date: 20181110
  Transmission Date: 20190205
  Serious: Yes (Other)
  Sender: FDA-Public Use
  Company Number: JP-ALLIED PHARMA, LLC-2058693

PATIENT
  Age: 69 Year
  Sex: Female

DRUGS (3)
  1. AMOXICILLIN. [Interacting]
     Active Substance: AMOXICILLIN
     Route: 065
  2. CLARITHROMYCIN. [Suspect]
     Active Substance: CLARITHROMYCIN
     Indication: HELICOBACTER INFECTION
     Route: 065
  3. VONOPRAZAN [Interacting]
     Active Substance: VONOPRAZAN
     Route: 065

REACTIONS (2)
  - Erythema multiforme [Recovering/Resolving]
  - Drug interaction [Recovering/Resolving]
